FAERS Safety Report 20480836 (Version 5)
Quarter: 2022Q2

REPORT INFORMATION
  Report Type: Spontaneous
  Country: US (occurrence: US)
  Receive Date: 20220216
  Receipt Date: 20220623
  Transmission Date: 20220721
  Serious: Yes (Other)
  Sender: FDA-Public Use
  Company Number: US-PFIZER INC-202200092403

PATIENT
  Age: 64 Year
  Sex: Female

DRUGS (1)
  1. IBRANCE [Suspect]
     Active Substance: PALBOCICLIB
     Indication: Breast cancer female
     Dosage: 75 MG
     Dates: start: 20211124

REACTIONS (4)
  - Neutropenia [Recovered/Resolved]
  - Product dose omission issue [Unknown]
  - Full blood count abnormal [Unknown]
  - White blood cell count decreased [Not Recovered/Not Resolved]
